FAERS Safety Report 18116699 (Version 1)
Quarter: 2020Q3

REPORT INFORMATION
  Report Type: Spontaneous
  Country: SE (occurrence: SE)
  Receive Date: 20200805
  Receipt Date: 20200805
  Transmission Date: 20201103
  Serious: Yes (Life-Threatening, Hospitalization, Other)
  Sender: FDA-Public Use
  Company Number: NVSC2020SE216469

PATIENT
  Sex: Female

DRUGS (14)
  1. MAGNEESIUM [Concomitant]
     Active Substance: MAGNESIUM
     Indication: MINERAL SUPPLEMENTATION
     Dosage: 120 MG, QD
     Route: 065
     Dates: start: 20200208
  2. RESONIUM [Concomitant]
     Active Substance: SODIUM POLYSTYRENE SULFONATE
     Indication: BLOOD POTASSIUM INCREASED
     Dosage: 15 G, QD(15 GRAMS AT 8 AM DAILY)
     Route: 065
     Dates: start: 20200215
  3. BISOPROLOL [Concomitant]
     Active Substance: BISOPROLOL
     Indication: HYPERTENSION
  4. BRILIQUE [Concomitant]
     Active Substance: TICAGRELOR
     Indication: ANTICOAGULANT THERAPY
     Dosage: 2 DF, BID(1 TABLET AT 8 AM DAILY 1 TABLET AT 8 PM DAILY SHOULD BE TAKEN DAILY FOR A YEAR UNTIL 06 FE
     Route: 065
     Dates: start: 20200207
  5. CANDESARSTAD [Concomitant]
     Indication: PRODUCT USED FOR UNKNOWN INDICATION
     Dosage: 16 MG
     Route: 065
  6. BEHEPAN [Concomitant]
     Indication: VITAMIN SUPPLEMENTATION
     Dosage: 1 DF, QD(1 TABLET AT 8 AM DAILY MANY YEARS OF TREATMENT )
     Route: 065
  7. NICOTINELL [Concomitant]
     Active Substance: NICOTINE
     Indication: NICOTINE DEPENDENCE
     Dosage: 1 DF, QD(1 PATCH AT 8 AM DAILY  )
     Route: 065
     Dates: start: 20200206
  8. FURIX [Concomitant]
     Indication: PRODUCT USED FOR UNKNOWN INDICATION
     Dosage: 1 DF, PRN(1 TABLET WHEN NEEDED )
     Route: 065
  9. ALLOPURINOL. [Suspect]
     Active Substance: ALLOPURINOL
     Indication: PROPHYLAXIS
     Dosage: 300 MG, QD
     Route: 065
     Dates: start: 20200218, end: 202003
  10. ALVEDON [Concomitant]
     Active Substance: ACETAMINOPHEN
     Indication: PAIN
     Dosage: 2 DF, PRN(2 TABLETS WHEN NEEDED)
     Route: 065
  11. CRESTOR [Concomitant]
     Active Substance: ROSUVASTATIN CALCIUM
     Indication: HYPOLIPIDAEMIA
     Dosage: 1 DF, QD(1 TABLET AT 8 AM DAILY  )
     Route: 065
  12. ACETYLSALICYLIC ACID [Concomitant]
     Active Substance: ASPIRIN
     Indication: CARDIAC DISORDER
     Dosage: 1 DF, QD(1 TABLET AT 8 AM DAILY)
     Route: 065
  13. AMLODIPIN [Concomitant]
     Active Substance: AMLODIPINE BESYLATE
     Indication: HYPERTENSION
     Dosage: 3 DF, QD(2 TABLETS AT 8 AM DAILY 1 TABLET AT 8 PM DAILY OVERDOSED WITH KNOWLEDGE,)
     Route: 065
  14. BISOPROLOL [Concomitant]
     Active Substance: BISOPROLOL
     Indication: CARDIAC DISORDER
     Dosage: 1 DF, BID(1 TABLET AT 8 AM DAILY 1 TABLET AT 8 PM DAILY )
     Route: 065

REACTIONS (8)
  - Dyspnoea [Not Recovered/Not Resolved]
  - Drug reaction with eosinophilia and systemic symptoms [Not Recovered/Not Resolved]
  - Renal disorder [Not Recovered/Not Resolved]
  - Atrial fibrillation [Not Recovered/Not Resolved]
  - Liver disorder [Not Recovered/Not Resolved]
  - Diarrhoea [Not Recovered/Not Resolved]
  - Pyrexia [Not Recovered/Not Resolved]
  - Rash [Not Recovered/Not Resolved]

NARRATIVE: CASE EVENT DATE: 2020
